FAERS Safety Report 13003478 (Version 2)
Quarter: 2016Q4

REPORT INFORMATION
  Report Type: Spontaneous
  Country: FR (occurrence: FR)
  Receive Date: 20161206
  Receipt Date: 20161220
  Transmission Date: 20170207
  Serious: Yes (Death, Other)
  Sender: FDA-Public Use
  Company Number: FR-BAYER-2015-386125

PATIENT
  Age: 65 Year
  Sex: Female

DRUGS (1)
  1. STIVARGA [Suspect]
     Active Substance: REGORAFENIB
     Indication: COLORECTAL CANCER METASTATIC
     Dosage: 80 MG, IN THE MORNING 3 WEEKS/4
     Route: 048
     Dates: start: 20150526, end: 20150719

REACTIONS (12)
  - Hepatitis acute [Fatal]
  - Vomiting [Fatal]
  - Jaundice [Fatal]
  - Cholecystitis [Fatal]
  - Hepatic encephalopathy [Fatal]
  - Decreased appetite [Fatal]
  - Nausea [Fatal]
  - Abdominal pain upper [Fatal]
  - Weight decreased [Fatal]
  - Confusional state [Fatal]
  - Coma [Fatal]
  - Asthenia [Fatal]

NARRATIVE: CASE EVENT DATE: 20150712
